FAERS Safety Report 25487231 (Version 2)
Quarter: 2025Q3

REPORT INFORMATION
  Report Type: Report from Study
  Country: US (occurrence: US)
  Receive Date: 20250627
  Receipt Date: 20250701
  Transmission Date: 20251021
  Serious: Yes (Hospitalization)
  Sender: ROCHE
  Company Number: US-ROCHE-10000321433

PATIENT

DRUGS (11)
  1. RITUXIMAB [Suspect]
     Active Substance: RITUXIMAB
     Indication: Multiple sclerosis
     Route: 065
  2. RITUXIMAB [Suspect]
     Active Substance: RITUXIMAB
     Indication: Neuromyelitis optica spectrum disorder
  3. OCRELIZUMAB [Suspect]
     Active Substance: OCRELIZUMAB
     Indication: Multiple sclerosis
     Route: 065
  4. OCRELIZUMAB [Suspect]
     Active Substance: OCRELIZUMAB
     Indication: Neuromyelitis optica spectrum disorder
  5. MYCOPHENOLATE MOFETIL [Suspect]
     Active Substance: MYCOPHENOLATE MOFETIL
     Indication: Product used for unknown indication
     Route: 065
  6. OFATUMUMAB [Suspect]
     Active Substance: OFATUMUMAB
     Indication: Multiple sclerosis
     Route: 065
  7. OFATUMUMAB [Suspect]
     Active Substance: OFATUMUMAB
     Indication: Neuromyelitis optica spectrum disorder
  8. UBLITUXIMAB [Suspect]
     Active Substance: UBLITUXIMAB
     Indication: Multiple sclerosis
     Route: 065
  9. UBLITUXIMAB [Suspect]
     Active Substance: UBLITUXIMAB
     Indication: Neuromyelitis optica spectrum disorder
  10. INEBILIZUMAB [Suspect]
     Active Substance: INEBILIZUMAB
     Indication: Multiple sclerosis
     Route: 065
  11. INEBILIZUMAB [Suspect]
     Active Substance: INEBILIZUMAB
     Indication: Neuromyelitis optica spectrum disorder

REACTIONS (11)
  - Neutropenia [Unknown]
  - Fungal pharyngitis [Unknown]
  - Cellulitis [Unknown]
  - COVID-19 pneumonia [Unknown]
  - Cytomegalovirus viraemia [Unknown]
  - Escherichia urinary tract infection [Unknown]
  - Cytomegalovirus colitis [Unknown]
  - Fungal oesophagitis [Unknown]
  - Mucosal infection [Unknown]
  - Meningitis [Unknown]
  - Pneumonia viral [Unknown]
